FAERS Safety Report 9016361 (Version 1)
Quarter: 2013Q1

REPORT INFORMATION
  Report Type: Report from Study
  Country: US (occurrence: US)
  Receive Date: 20130116
  Receipt Date: 20130116
  Transmission Date: 20140127
  Serious: Yes (Hospitalization, Other)
  Sender: FDA-Public Use
  Company Number: US-ROCHE-1179088

PATIENT
  Age: 40 Year
  Sex: Female
  Weight: 79.9 kg

DRUGS (3)
  1. TOCILIZUMAB [Suspect]
     Indication: RENAL FAILURE CHRONIC
     Dosage: STRENGTH 20MG/ML
     Route: 042
     Dates: start: 20120810
  2. TOCILIZUMAB [Suspect]
     Route: 042
     Dates: start: 20120907
  3. TOCILIZUMAB [Suspect]
     Route: 042
     Dates: start: 20121005

REACTIONS (7)
  - Pyrexia [Unknown]
  - Myalgia [Unknown]
  - Asthenia [Unknown]
  - Pneumonia [Recovered/Resolved]
  - Fluid overload [Unknown]
  - Pulmonary vascular disorder [Unknown]
  - Cardiac arrest [Unknown]
